FAERS Safety Report 6526866-7 (Version None)
Quarter: 2010Q1

REPORT INFORMATION
  Report Type: 
  Country: None (occurrence: None)
  Receive Date: 20100105
  Receipt Date: 20091224
  Transmission Date: 20100710
  Serious: Yes (Hospitalization, Other)
  Sender: FDA-Public Use
  Company Number: PHHY2009FR50880

PATIENT
  Sex: Male

DRUGS (2)
  1. EXJADE [Suspect]
     Indication: ANAEMIA
     Dosage: 500 MG, TID
     Route: 048
     Dates: start: 20080618
  2. EXJADE [Suspect]
     Dosage: 500 MG, BID
     Route: 048
     Dates: start: 20090929

REACTIONS (15)
  - ABDOMINAL PAIN UPPER [None]
  - ANAEMIA [None]
  - BLOOD CREATININE INCREASED [None]
  - CREATININE RENAL CLEARANCE DECREASED [None]
  - DIARRHOEA [None]
  - DYSPNOEA [None]
  - FATIGUE [None]
  - GENERAL PHYSICAL HEALTH DETERIORATION [None]
  - HEPATIC FAILURE [None]
  - HYPOALBUMINAEMIA [None]
  - OEDEMA [None]
  - PALPITATIONS [None]
  - PROTHROMBIN TIME SHORTENED [None]
  - SERUM FERRITIN DECREASED [None]
  - WEIGHT DECREASED [None]
